FAERS Safety Report 10751737 (Version 1)
Quarter: 2015Q1

REPORT INFORMATION
  Report Type: Spontaneous
  Country: RU (occurrence: RU)
  Receive Date: 20150130
  Receipt Date: 20150130
  Transmission Date: 20150721
  Serious: Yes (Life-Threatening, Hospitalization)
  Sender: FDA-Public Use
  Company Number: RU-ASTRAZENECA-2015SE07619

PATIENT
  Age: 68 Year
  Sex: Male
  Weight: 90 kg

DRUGS (8)
  1. METOPROLOL [Concomitant]
     Active Substance: METOPROLOL
  2. CAPTOPRIL. [Concomitant]
     Active Substance: CAPTOPRIL
  3. ARIXTRA [Concomitant]
     Active Substance: FONDAPARINUX SODIUM
  4. ASPIRIN. [Concomitant]
     Active Substance: ASPIRIN
  5. FUROSEMIDE. [Concomitant]
     Active Substance: FUROSEMIDE
  6. OMEZ [Concomitant]
     Active Substance: OMEPRAZOLE
  7. VEROSPIRON [Concomitant]
     Active Substance: SPIRONOLACTONE
  8. BRILINTA [Suspect]
     Active Substance: TICAGRELOR
     Indication: ACUTE MYOCARDIAL INFARCTION
     Route: 048
     Dates: start: 201412

REACTIONS (1)
  - Acute myocardial infarction [Unknown]

NARRATIVE: CASE EVENT DATE: 20150112
